FAERS Safety Report 23220175 (Version 3)
Quarter: 2023Q4

REPORT INFORMATION
  Report Type: Spontaneous
  Country: KZ (occurrence: KZ)
  Receive Date: 20231123
  Receipt Date: 20231213
  Transmission Date: 20240110
  Serious: Yes (Other)
  Sender: FDA-Public Use
  Company Number: KZ-AMAROX PHARMA-HET2023KZ03289

PATIENT
  Sex: Male
  Weight: 49 kg

DRUGS (1)
  1. EMTRICITABINE\TENOFOVIR DISOPROXIL FUMARATE [Suspect]
     Active Substance: EMTRICITABINE\TENOFOVIR DISOPROXIL FUMARATE
     Indication: Asymptomatic HIV infection
     Dosage: 1 DOSAGE FORM, ONE TABLET PER DAY.
     Route: 065
     Dates: start: 20220908, end: 20230912

REACTIONS (1)
  - Nephropathy toxic [Recovering/Resolving]
